FAERS Safety Report 7861428-0 (Version None)
Quarter: 2011Q4

REPORT INFORMATION
  Report Type: 
  Country: None (occurrence: None)
  Receive Date: 20111027
  Receipt Date: 20111024
  Transmission Date: 20120403
  Serious: Yes (Hospitalization)
  Sender: FDA-Public Use
  Company Number: BR-PFIZER INC-2011256991

PATIENT
  Age: 49 Year
  Sex: Male
  Weight: 103 kg

DRUGS (7)
  1. HYDROCHLOROTHIAZIDE [Suspect]
     Dosage: 25 MG, UNK
  2. CLONIDINE [Suspect]
     Dosage: 0.8 G, UNK
  3. ATENOLOL [Suspect]
     Dosage: 100 MG, UNK
  4. NITROPRUSSIDE SODIUM [Suspect]
  5. AMLODIPINE BESYLATE [Suspect]
     Dosage: 20 MG, UNK
  6. LOSARTAN [Suspect]
     Dosage: 100 MG, UNK
  7. MINOXIDIL [Suspect]
     Dosage: 10 MG, UNK

REACTIONS (2)
  - HYPERTENSIVE CRISIS [None]
  - HAEMORRHAGIC STROKE [None]
